FAERS Safety Report 23999630 (Version 1)
Quarter: 2024Q2

REPORT INFORMATION
  Report Type: Spontaneous
  Country: US (occurrence: None)
  Receive Date: 20240620
  Receipt Date: 20240620
  Transmission Date: 20240715
  Serious: Yes (Death)
  Sender: FDA-Public Use
  Company Number: None

PATIENT
  Age: 72 Year
  Sex: Male

DRUGS (12)
  1. TACROLIMUS [Suspect]
     Active Substance: TACROLIMUS
     Indication: Lung transplant
     Dosage: OTHER QUANTITY : AS DIRECTED;?
     Route: 048
     Dates: start: 20240505, end: 20240618
  2. MYCOPHENOLATE MOFETIL\MYCOPHENOLATE MOFETIL HYDROCHLORIDE [Suspect]
     Active Substance: MYCOPHENOLATE MOFETIL\MYCOPHENOLATE MOFETIL HYDROCHLORIDE
     Indication: Lung transplant
     Dosage: 500 MG BID ORAL?
     Route: 048
     Dates: start: 20240505, end: 20240618
  3. PRIMIDONE [Concomitant]
     Active Substance: PRIMIDONE
  4. ITRACONAZOLE [Concomitant]
     Active Substance: ITRACONAZOLE
  5. PREDNISONE [Concomitant]
     Active Substance: PREDNISONE
  6. ELIQUIS [Concomitant]
     Active Substance: APIXABAN
  7. MIRTAZAPINE [Concomitant]
     Active Substance: MIRTAZAPINE
  8. MELOXICAM [Concomitant]
     Active Substance: MELOXICAM
  9. METOPROLOL TARTRATE [Concomitant]
     Active Substance: METOPROLOL TARTRATE
  10. AZITHROMYCIN [Concomitant]
     Active Substance: AZITHROMYCIN
  11. ASPIRIN [Concomitant]
     Active Substance: ASPIRIN
  12. FINASTERIDE [Concomitant]
     Active Substance: FINASTERIDE

REACTIONS (2)
  - Death [None]
  - Autopsy [None]

NARRATIVE: CASE EVENT DATE: 20240618
